FAERS Safety Report 7248863 (Version 32)
Quarter: 2014Q1

REPORT INFORMATION
  Report Type: Spontaneous
  Country: US (occurrence: US)
  Receive Date: 20100119
  Receipt Date: 20140116
  Transmission Date: 20141002
  Serious: Yes (Hospitalization, Other)
  Sender: FDA-Public Use
  Company Number: PHEH2010US00606

PATIENT
  Sex: Female
  Weight: 72 kg

DRUGS (24)
  1. ZOMETA [Suspect]
     Indication: METASTASES TO BONE
     Dosage: 4 MG, QMO
     Route: 042
     Dates: end: 20081205
  2. ZOMETA [Suspect]
     Indication: METASTATIC NEOPLASM
     Dosage: 4 MG, QMO
     Route: 042
     Dates: end: 20090210
  3. ZOMETA [Suspect]
     Indication: BREAST CANCER METASTATIC
     Dosage: 4 MG, QMO
     Route: 042
     Dates: start: 20090302, end: 20090519
  4. AREDIA [Suspect]
     Dosage: 90 MG, QW4
     Route: 042
  5. ACIPHEX [Concomitant]
     Dosage: 20 MG, UNK
  6. LEXAPRO [Concomitant]
     Dosage: 20 MG, UNK
  7. FOLIC ACID [Concomitant]
  8. MEGASTROL [Concomitant]
     Dosage: 40 MG, UNK
  9. BACTRIM [Concomitant]
  10. FASLODEX [Concomitant]
  11. VITAMIN B12 [Concomitant]
  12. VITAMIN D [Concomitant]
  13. KEFLEX [Concomitant]
  14. DURAGESIC [Concomitant]
  15. CLARINEX [Concomitant]
  16. RESTORIL [Concomitant]
  17. MEGACE [Concomitant]
  18. DILAUDID [Concomitant]
  19. PREDNISONE [Concomitant]
  20. ZANTAC [Concomitant]
  21. NEXIUM [Concomitant]
  22. AROMASIN [Concomitant]
  23. VIOXX [Concomitant]
  24. AMBIEN [Concomitant]

REACTIONS (154)
  - Rheumatoid arthritis [Recovering/Resolving]
  - Arthralgia [Not Recovered/Not Resolved]
  - Fatigue [Unknown]
  - Foot fracture [Unknown]
  - Nodal osteoarthritis [Unknown]
  - Back pain [Unknown]
  - Osteonecrosis of jaw [Unknown]
  - Toothache [Unknown]
  - Loose tooth [Unknown]
  - Stomatitis [Unknown]
  - Injury [Unknown]
  - Pain [Unknown]
  - Anxiety [Unknown]
  - Infection [Unknown]
  - Anhedonia [Unknown]
  - Amnesia [Unknown]
  - Compression fracture [Unknown]
  - Osteoarthritis [Unknown]
  - Actinic keratosis [Unknown]
  - Photodermatosis [Unknown]
  - Seborrhoeic keratosis [Unknown]
  - Basal cell carcinoma [Unknown]
  - Lentigo [Unknown]
  - Hyperkeratosis [Unknown]
  - Skin plaque [Unknown]
  - Intervertebral disc degeneration [Unknown]
  - Kyphosis [Unknown]
  - Spinal osteoarthritis [Unknown]
  - Temporal arteritis [Unknown]
  - Blindness [Unknown]
  - Helicobacter gastritis [Recovered/Resolved]
  - Metastases to bone [Unknown]
  - Hyperlipidaemia [Unknown]
  - Chest pain [Unknown]
  - Large intestine polyp [Unknown]
  - Depression [Unknown]
  - Anaemia [Unknown]
  - Palpitations [Unknown]
  - Synovitis [Unknown]
  - Glaucoma [Unknown]
  - Joint effusion [Unknown]
  - Intervertebral disc protrusion [Unknown]
  - Bronchial hyperreactivity [Unknown]
  - Rib fracture [Unknown]
  - Atelectasis [Unknown]
  - Hypertension [Unknown]
  - Painful respiration [Unknown]
  - Pneumothorax [Unknown]
  - Pleural effusion [Unknown]
  - Hypoxia [Unknown]
  - Gastrooesophageal reflux disease [Unknown]
  - Hypertransaminasaemia [Unknown]
  - Hepatic enzyme increased [Unknown]
  - Vision blurred [Unknown]
  - Onychomycosis [Unknown]
  - Vitamin B12 deficiency [Unknown]
  - Oropharyngeal pain [Unknown]
  - Respiratory tract congestion [Unknown]
  - Cerebral atrophy [Unknown]
  - Cerebellar atrophy [Unknown]
  - Hepatic steatosis [Unknown]
  - Hepatic fibrosis [Unknown]
  - Inflammation [Unknown]
  - Leukocytosis [Unknown]
  - Tricuspid valve incompetence [Unknown]
  - Gallbladder disorder [Unknown]
  - Haemorrhoids [Unknown]
  - Diverticulum [Unknown]
  - Bronchitis [Unknown]
  - Blood cholesterol increased [Unknown]
  - Gait disturbance [Unknown]
  - Cataract nuclear [Unknown]
  - Cataract cortical [Unknown]
  - Collagen-vascular disease [Unknown]
  - Onychogryphosis [Unknown]
  - Neuropathy peripheral [Unknown]
  - Swelling [Recovering/Resolving]
  - Hypoaesthesia [Unknown]
  - Paronychia [Recovered/Resolved]
  - Ingrowing nail [Unknown]
  - Fall [Unknown]
  - Ligament sprain [Unknown]
  - Tenderness [Unknown]
  - Lymphadenopathy [Unknown]
  - Goitre [Unknown]
  - Upper respiratory tract infection [Unknown]
  - Vertebral foraminal stenosis [Unknown]
  - Exostosis [Unknown]
  - Haemarthrosis [Unknown]
  - Bone marrow disorder [Unknown]
  - Bone deformity [Unknown]
  - Asthma [Unknown]
  - Excessive granulation tissue [Unknown]
  - Chronic hepatitis [Unknown]
  - Pathological fracture [Unknown]
  - Soft tissue disorder [Unknown]
  - Mass [Unknown]
  - Skin mass [Unknown]
  - Lipoma [Unknown]
  - Osteitis [Unknown]
  - Bone fragmentation [Unknown]
  - Metastases to spine [Unknown]
  - Pulmonary oedema [Unknown]
  - Pneumonia [Recovered/Resolved]
  - Urinary incontinence [Unknown]
  - Faecal incontinence [Unknown]
  - Skin cancer [Unknown]
  - Second primary malignancy [Unknown]
  - Mastication disorder [Unknown]
  - Tooth infection [Unknown]
  - Gingival disorder [Unknown]
  - Tooth abscess [Unknown]
  - Herpes zoster [Unknown]
  - Osteomyelitis [Unknown]
  - Impaired healing [Unknown]
  - Ear infection [Unknown]
  - Oedema peripheral [Unknown]
  - Chest discomfort [Unknown]
  - Dyspepsia [Unknown]
  - Oesophageal stenosis [Unknown]
  - Abdominal pain upper [Unknown]
  - Dyspnoea [Unknown]
  - Liver function test abnormal [Unknown]
  - Overweight [Unknown]
  - Musculoskeletal chest pain [Unknown]
  - Constipation [Unknown]
  - Eyelid ptosis [Unknown]
  - Corneal oedema [Unknown]
  - Vitreous adhesions [Unknown]
  - Appendix disorder [Unknown]
  - Abdominal pain lower [Unknown]
  - Bone pain [Unknown]
  - Joint swelling [Unknown]
  - Pain in extremity [Unknown]
  - Blood glucose increased [Unknown]
  - Arteriosclerosis coronary artery [Unknown]
  - Hiatus hernia [Unknown]
  - Nephrolithiasis [Unknown]
  - Musculoskeletal pain [Unknown]
  - Spinal pain [Unknown]
  - Bone lesion [Unknown]
  - Mucosal membrane hyperplasia [Unknown]
  - Peritoneal fibrosis [Unknown]
  - Tooth loss [Unknown]
  - Ocular hyperaemia [Unknown]
  - Metamorphopsia [Unknown]
  - Photophobia [Unknown]
  - Eye pain [Unknown]
  - Ocular hypertension [Unknown]
  - Rash [Unknown]
  - Oral pain [Unknown]
  - Iritis [Unknown]
  - Orthopnoea [Unknown]
  - Decreased appetite [Unknown]
